FAERS Safety Report 7353255-8 (Version None)
Quarter: 2011Q1

REPORT INFORMATION
  Report Type: 
  Country: None (occurrence: None)
  Receive Date: 20110310
  Receipt Date: 20110310
  Transmission Date: 20110831
  Serious: No
  Sender: FDA-Public Use
  Company Number: None

PATIENT
  Age: 34 Year
  Sex: Male

DRUGS (1)
  1. TOYYKO TREN [Suspect]
     Dates: start: 20090901, end: 20090925

REACTIONS (15)
  - PRURITUS [None]
  - FAECES PALE [None]
  - ASPARTATE AMINOTRANSFERASE INCREASED [None]
  - CHROMATURIA [None]
  - FLANK PAIN [None]
  - BLOOD BILIRUBIN INCREASED [None]
  - DECREASED APPETITE [None]
  - BILIARY TRACT DISORDER [None]
  - BLOOD ALKALINE PHOSPHATASE INCREASED [None]
  - ALANINE AMINOTRANSFERASE INCREASED [None]
  - ANTINUCLEAR ANTIBODY POSITIVE [None]
  - BILIRUBIN CONJUGATED INCREASED [None]
  - SMOOTH MUSCLE ANTIBODY POSITIVE [None]
  - CHOLESTASIS [None]
  - LIVER INJURY [None]
